FAERS Safety Report 9240867 (Version 1)
Quarter: 2013Q1

REPORT INFORMATION
  Report Type: Spontaneous
  Country: US (occurrence: None)
  Receive Date: 20121120
  Receipt Date: 20121120
  Transmission Date: 20140127
  Serious: No
  Sender: FDA-Public Use
  Company Number: 1000037518

PATIENT
  Age: 55 Year
  Sex: Female

DRUGS (3)
  1. VIIBRYD [Suspect]
     Indication: ANXIETY
     Dosage: 10MG (10MG, 1 IN 1 D), ORAL
     Route: 048
     Dates: start: 201207, end: 201207
  2. VIIBRYD [Suspect]
     Indication: ANXIETY
     Dosage: 20MG (20MG, 1 IN 1 D), ORAL
     Route: 048
     Dates: start: 201207, end: 201207
  3. PRILOSEC (OMEPRAZOLE) (OMEPRAZOLE) [Concomitant]

REACTIONS (4)
  - Heart rate increased [None]
  - Agitation [None]
  - Anxiety [None]
  - Off label use [None]
